FAERS Safety Report 10178900 (Version 3)
Quarter: 2015Q2

REPORT INFORMATION
  Report Type: Spontaneous
  Country: US (occurrence: US)
  Receive Date: 20140519
  Receipt Date: 20150518
  Transmission Date: 20150821
  Serious: No
  Sender: FDA-Public Use
  Company Number: US-BIOGENIDEC-2014BI040523

PATIENT
  Age: 62 Year
  Sex: Female

DRUGS (18)
  1. CLONAZEPAM. [Concomitant]
     Active Substance: CLONAZEPAM
  2. BACLOFEN. [Concomitant]
     Active Substance: BACLOFEN
  3. CALCIUM MAGNESIUM ZINC [Concomitant]
     Active Substance: CALCIUM\MAGNESIUM\ZINC
  4. TEMAZEPAM. [Concomitant]
     Active Substance: TEMAZEPAM
  5. PROCARDIA [Concomitant]
     Active Substance: NIFEDIPINE
  6. LISINOPRIL. [Concomitant]
     Active Substance: LISINOPRIL
  7. NORTRIPTYLINE HCL [Concomitant]
     Active Substance: NORTRIPTYLINE HYDROCHLORIDE
  8. LINZESS [Concomitant]
     Active Substance: LINACLOTIDE
  9. GABAPENTIN. [Concomitant]
     Active Substance: GABAPENTIN
  10. CARBAMAZEPINE ER [Concomitant]
     Active Substance: CARBAMAZEPINE
  11. VITAMIN D [Concomitant]
     Active Substance: CHOLECALCIFEROL
  12. NUCYNTA [Concomitant]
     Active Substance: TAPENTADOL HYDROCHLORIDE
  13. OMEPRAZOLE. [Concomitant]
     Active Substance: OMEPRAZOLE
  14. ZYRTEC [Concomitant]
     Active Substance: CETIRIZINE HYDROCHLORIDE
  15. ASPIRIN. [Concomitant]
     Active Substance: ASPIRIN
  16. CITALOPRAM HYDROBROMIDE. [Concomitant]
     Active Substance: CITALOPRAM HYDROBROMIDE
  17. TECFIDERA [Suspect]
     Active Substance: DIMETHYL FUMARATE
     Indication: MULTIPLE SCLEROSIS
     Route: 048
     Dates: start: 20140404
  18. VIT B COMPLEX [Concomitant]

REACTIONS (2)
  - Weight increased [Unknown]
  - Flushing [Unknown]
